FAERS Safety Report 19885802 (Version 1)
Quarter: 2021Q3

REPORT INFORMATION
  Report Type: Spontaneous
  Country: ES (occurrence: ES)
  Receive Date: 20210927
  Receipt Date: 20210927
  Transmission Date: 20211014
  Serious: Yes (Other)
  Sender: FDA-Public Use
  Company Number: ES-ACCORD-239704

PATIENT
  Age: 66 Year
  Sex: Male

DRUGS (1)
  1. CISATRACURIUM/CISATRACURIUM BESILATE [Suspect]
     Active Substance: CISATRACURIUM BESYLATE
     Indication: PRODUCT USED FOR UNKNOWN INDICATION
     Route: 042
     Dates: start: 20210216, end: 20210216

REACTIONS (2)
  - Wrong dose [Unknown]
  - Weaning failure [Recovered/Resolved]

NARRATIVE: CASE EVENT DATE: 20210216
